APPROVED DRUG PRODUCT: RIVASTIGMINE
Active Ingredient: RIVASTIGMINE
Strength: 13.3MG/24HR
Dosage Form/Route: FILM, EXTENDED RELEASE;TRANSDERMAL
Application: A215445 | Product #003 | TE Code: AB
Applicant: YICHANG HUMANWELL PHARMACEUTICAL CO LTD
Approved: Sep 23, 2025 | RLD: No | RS: No | Type: RX